FAERS Safety Report 8110469-7 (Version None)
Quarter: 2012Q1

REPORT INFORMATION
  Report Type: 
  Country: None (occurrence: None)
  Receive Date: 20120202
  Receipt Date: 20120127
  Transmission Date: 20120608
  Serious: Yes (Hospitalization)
  Sender: FDA-Public Use
  Company Number: US-ASTRAZENECA-2009UW10250

PATIENT
  Age: 72 Year
  Sex: Male

DRUGS (9)
  1. LITHIUM CARBONATE [Concomitant]
  2. SEROQUEL [Suspect]
     Route: 048
  3. SEROQUEL [Suspect]
     Indication: DEPRESSION
     Route: 048
  4. SEROQUEL [Suspect]
     Route: 048
  5. SEROQUEL [Suspect]
     Route: 048
  6. SEROQUEL [Suspect]
     Route: 048
  7. SEROQUEL [Suspect]
     Indication: BIPOLAR DISORDER
     Route: 048
  8. SEROQUEL [Suspect]
     Route: 048
  9. SEROQUEL [Suspect]
     Route: 048

REACTIONS (17)
  - PARANOIA [None]
  - MENTAL DISORDER [None]
  - MUSCLE TWITCHING [None]
  - DRUG DOSE OMISSION [None]
  - DRUG DEPENDENCE [None]
  - BRUXISM [None]
  - TREMOR [None]
  - DRUG WITHDRAWAL SYNDROME [None]
  - ROAD TRAFFIC ACCIDENT [None]
  - DYSKINESIA [None]
  - INCORRECT DOSE ADMINISTERED [None]
  - PNEUMONIA [None]
  - ANXIETY [None]
  - DELUSION [None]
  - DIABETES MELLITUS [None]
  - PAIN [None]
  - INSOMNIA [None]
